FAERS Safety Report 6779769-7 (Version None)
Quarter: 2010Q2

REPORT INFORMATION
  Report Type: 
  Country: None (occurrence: None)
  Receive Date: 20100618
  Receipt Date: 20100609
  Transmission Date: 20101027
  Serious: Yes (Other)
  Sender: FDA-Public Use
  Company Number: CA-JNJFOC-20100603246

PATIENT
  Sex: Female
  Weight: 76.4 kg

DRUGS (3)
  1. REMICADE [Suspect]
     Indication: COLITIS ULCERATIVE
     Dosage: DOSE ^TO PRESENT^
     Route: 042
  2. METHOTREXATE [Concomitant]
     Route: 048
  3. CALCIUM CARBONATE [Concomitant]

REACTIONS (3)
  - ABDOMINAL PAIN [None]
  - FATIGUE [None]
  - JOINT LOCK [None]
